FAERS Safety Report 6867260-9 (Version None)
Quarter: 2010Q3

REPORT INFORMATION
  Report Type: 
  Country: None (occurrence: None)
  Receive Date: 20100722
  Receipt Date: 20100716
  Transmission Date: 20110219
  Serious: Yes (Hospitalization)
  Sender: FDA-Public Use
  Company Number: US-SANOFI-AVENTIS-2010SA042214

PATIENT
  Sex: Male

DRUGS (4)
  1. AMARYL [Suspect]
  2. ORAL ANTIDIABETICS [Suspect]
  3. INSULIN [Concomitant]
  4. OTHER ANTIHYPERTENSIVES [Concomitant]

REACTIONS (1)
  - CARDIAC FAILURE [None]
